FAERS Safety Report 16553975 (Version 1)
Quarter: 2019Q3

REPORT INFORMATION
  Report Type: Spontaneous
  Country: US (occurrence: US)
  Receive Date: 20190710
  Receipt Date: 20190710
  Transmission Date: 20191004
  Serious: Yes (Hospitalization, Other)
  Sender: FDA-Public Use
  Company Number: US-GILEAD-2019-0417304

PATIENT
  Sex: Male

DRUGS (15)
  1. PEGASYS [Suspect]
     Active Substance: PEGINTERFERON ALFA-2A
     Indication: HEPATITIS C
     Dosage: 160 MG, Q1WK
     Route: 065
     Dates: start: 20141015
  2. LYRICA [Concomitant]
     Active Substance: PREGABALIN
     Indication: NEURALGIA
     Route: 065
  3. COPEGUS [Suspect]
     Active Substance: RIBAVIRIN
     Indication: HEPATITIS C
     Dosage: 5 DOSAGE FORM, QD
     Route: 065
  4. RIBASPHERE RIBAPAK [Suspect]
     Active Substance: RIBAVIRIN
     Indication: HEPATITIS C
     Route: 065
     Dates: start: 201410
  5. VALTRAX [Concomitant]
     Active Substance: DIAZEPAM\ISOPROPAMIDE IODIDE
     Indication: HERPES ZOSTER
     Route: 065
  6. FISH OIL [Concomitant]
     Active Substance: FISH OIL
  7. PRANDIN [Concomitant]
     Active Substance: REPAGLINIDE
     Indication: DIABETES MELLITUS
     Route: 065
  8. FOLIC ACID. [Concomitant]
     Active Substance: FOLIC ACID
     Route: 065
  9. SOVALDI [Suspect]
     Active Substance: SOFOSBUVIR
     Indication: HEPATITIS C
     Dosage: 400 MG, QD
     Route: 065
     Dates: start: 201402, end: 201405
  10. COPEGUS [Suspect]
     Active Substance: RIBAVIRIN
     Dosage: UNK
     Route: 065
     Dates: start: 201402, end: 201405
  11. COPEGUS [Suspect]
     Active Substance: RIBAVIRIN
     Dosage: 800 MG
     Route: 065
  12. NEXIUM I.V. [Concomitant]
     Active Substance: ESOMEPRAZOLE SODIUM
     Indication: GASTROOESOPHAGEAL REFLUX DISEASE
  13. PROMACTA [Concomitant]
     Active Substance: ELTROMBOPAG OLAMINE
     Indication: HAEMOGLOBIN
     Route: 065
  14. INDERAL [Concomitant]
     Active Substance: PROPRANOLOL HYDROCHLORIDE
     Indication: BLOOD PRESSURE MEASUREMENT
     Route: 065
  15. PEGASYS [Suspect]
     Active Substance: PEGINTERFERON ALFA-2A
     Dosage: 180 UG
     Route: 065
     Dates: start: 201410

REACTIONS (15)
  - Mood swings [Not Recovered/Not Resolved]
  - Anxiety [Recovered/Resolved]
  - Pruritus [Not Recovered/Not Resolved]
  - Influenza like illness [Unknown]
  - Musculoskeletal pain [Unknown]
  - Flank pain [Unknown]
  - Hypoaesthesia [Not Recovered/Not Resolved]
  - Depression [Unknown]
  - Hepatic cirrhosis [Not Recovered/Not Resolved]
  - Visual impairment [Unknown]
  - Viral infection [Recovered/Resolved]
  - Depression [Not Recovered/Not Resolved]
  - Fatigue [Recovered/Resolved]
  - Pain [Recovered/Resolved]
  - Mental disorder [Recovered/Resolved]

NARRATIVE: CASE EVENT DATE: 2014
